FAERS Safety Report 25578452 (Version 2)
Quarter: 2025Q3

REPORT INFORMATION
  Report Type: Spontaneous
  Country: JP (occurrence: JP)
  Receive Date: 20250718
  Receipt Date: 20250804
  Transmission Date: 20251020
  Serious: Yes (Death)
  Sender: OTSUKA
  Company Number: JP-MMM-Otsuka-DSBWURGP

PATIENT
  Age: 47 Year
  Sex: Female

DRUGS (6)
  1. ABILIFY [Suspect]
     Active Substance: ARIPIPRAZOLE
     Indication: Schizophrenia
     Dosage: 30 MG/DAY
     Route: 048
     Dates: start: 20250707, end: 20250715
  2. ABILIFY [Suspect]
     Active Substance: ARIPIPRAZOLE
     Indication: Hallucination
  3. ABILIFY [Suspect]
     Active Substance: ARIPIPRAZOLE
     Indication: Delusion
  4. ABILIFY [Suspect]
     Active Substance: ARIPIPRAZOLE
     Indication: Agitation
  5. LEVOMEPROMAZINE MALEATE [Suspect]
     Active Substance: LEVOMEPROMAZINE MALEATE
     Indication: Product used for unknown indication
     Dosage: 100 MG/DAY
     Route: 048
     Dates: start: 20250703, end: 20250715
  6. DAYVIGO [Suspect]
     Active Substance: LEMBOREXANT
     Indication: Product used for unknown indication
     Dosage: 5 MG/DAY
     Route: 048
     Dates: start: 20250703, end: 20250715

REACTIONS (1)
  - Sudden death [Fatal]

NARRATIVE: CASE EVENT DATE: 20250716
